FAERS Safety Report 7476821-8 (Version None)
Quarter: 2011Q2

REPORT INFORMATION
  Report Type: 
  Country: None (occurrence: None)
  Receive Date: 20110512
  Receipt Date: 20110504
  Transmission Date: 20111010
  Serious: Yes (Hospitalization)
  Sender: FDA-Public Use
  Company Number: FR-PFIZER INC-2011095681

PATIENT
  Age: 49 Year
  Sex: Male

DRUGS (1)
  1. SIROLIMUS [Suspect]

REACTIONS (1)
  - DEPRESSION [None]
